FAERS Safety Report 25753655 (Version 2)
Quarter: 2025Q3

REPORT INFORMATION
  Report Type: Spontaneous
  Country: US (occurrence: US)
  Receive Date: 20250903
  Receipt Date: 20250926
  Transmission Date: 20251021
  Serious: No
  Sender: PFIZER
  Company Number: US-PFIZER INC-PV202500104805

PATIENT
  Age: 70 Year
  Sex: Female

DRUGS (5)
  1. XELJANZ XR [Suspect]
     Active Substance: TOFACITINIB CITRATE
     Indication: Rheumatoid arthritis
     Dosage: 11 MG, 1X/DAY
     Route: 048
     Dates: start: 202507
  2. ENBREL [Concomitant]
     Active Substance: ETANERCEPT
  3. RIFAMPIN [Concomitant]
     Active Substance: RIFAMPIN
     Indication: Exposure to communicable disease
     Dates: start: 202506
  4. IRON [Concomitant]
     Active Substance: IRON
     Indication: Red blood cell count decreased
     Dates: start: 2025
  5. BENAZEPRIL [Concomitant]
     Active Substance: BENAZEPRIL HYDROCHLORIDE
     Indication: Blood pressure increased
     Dates: start: 2025

REACTIONS (2)
  - Drug ineffective [Unknown]
  - White blood cell count abnormal [Unknown]

NARRATIVE: CASE EVENT DATE: 20250101
